FAERS Safety Report 15075995 (Version 1)
Quarter: 2018Q2

REPORT INFORMATION
  Report Type: Spontaneous
  Country: SE (occurrence: SE)
  Receive Date: 20180627
  Receipt Date: 20180627
  Transmission Date: 20180711
  Serious: Yes (Disabling)
  Sender: FDA-Public Use
  Company Number: SE-BAYER-2018-115098

PATIENT
  Age: 74 Year
  Sex: Male

DRUGS (13)
  1. SIMVASTATIN. [Concomitant]
     Active Substance: SIMVASTATIN
  2. IMDUR [Concomitant]
     Active Substance: ISOSORBIDE MONONITRATE
  3. VALSARTAN. [Concomitant]
     Active Substance: VALSARTAN
  4. XGEVA [Concomitant]
     Active Substance: DENOSUMAB
  5. ESOMEPRAZOLE [Concomitant]
     Active Substance: ESOMEPRAZOLE
  6. METOPROLOL. [Concomitant]
     Active Substance: METOPROLOL
  7. LYRICA [Concomitant]
     Active Substance: PREGABALIN
  8. XOFIGO [Suspect]
     Active Substance: RADIUM RA-223 DICHLORIDE
     Indication: PROSTATE CANCER
     Dosage: 55 KGBQ/KG
     Route: 042
  9. DEXAMETASON [Concomitant]
     Active Substance: DEXAMETHASONE
  10. KALCIPOS [Concomitant]
     Active Substance: CALCIUM CARBONATE
  11. TROMBYL [Concomitant]
     Active Substance: ASPIRIN
  12. OXYCODON [Concomitant]
     Active Substance: OXYCODONE
  13. ALVEDON [Concomitant]
     Active Substance: ACETAMINOPHEN

REACTIONS (1)
  - Multiple fractures [Not Recovered/Not Resolved]

NARRATIVE: CASE EVENT DATE: 20180522
